FAERS Safety Report 5197361-5 (Version None)
Quarter: 2006Q4

REPORT INFORMATION
  Report Type: 
  Country: None (occurrence: None)
  Receive Date: 20060929
  Receipt Date: 20060202
  Transmission Date: 20070319
  Serious: No
  Sender: FDA-Public Use
  Company Number: 06P-163-0324080-00

PATIENT
  Age: 46 Year
  Sex: Male
  Weight: 93.441 kg

DRUGS (13)
  1. DEPAKOTE ER [Suspect]
     Indication: AFFECT LABILITY
     Dosage: SEE IMAGE
     Route: 048
     Dates: start: 20041019, end: 20050906
  2. DEPAKOTE ER [Suspect]
     Indication: DEPRESSION
     Dosage: SEE IMAGE
     Route: 048
     Dates: start: 20041019, end: 20050906
  3. DEPAKOTE ER [Suspect]
     Indication: AFFECT LABILITY
     Dosage: SEE IMAGE
     Route: 048
     Dates: start: 20050907
  4. DEPAKOTE ER [Suspect]
     Indication: DEPRESSION
     Dosage: SEE IMAGE
     Route: 048
     Dates: start: 20050907
  5. CLOZAPINE [Suspect]
     Indication: AGGRESSION
     Dosage: SEE IMAGE
     Route: 048
     Dates: start: 20040220
  6. CLOZAPINE [Suspect]
     Indication: DELUSION
     Dosage: SEE IMAGE
     Route: 048
     Dates: start: 20040220
  7. CLOZAPINE [Suspect]
     Indication: SCHIZOPHRENIA
     Dosage: SEE IMAGE
     Route: 048
     Dates: start: 20040220
  8. AZAPROPAZONE DIHYDRATE [Concomitant]
  9. VITAMINS [Concomitant]
  10. COLECALCIFEROL [Concomitant]
  11. LEVOTHYROXINE SODIUM [Concomitant]
  12. HYDROXYZINE EMBONATE [Concomitant]
  13. BUPROPION HYDROCHLORIDE [Concomitant]

REACTIONS (3)
  - DRUG EFFECT DECREASED [None]
  - DRUG LEVEL INCREASED [None]
  - GRANULOCYTOPENIA [None]
